FAERS Safety Report 23683912 (Version 2)
Quarter: 2024Q4

REPORT INFORMATION
  Report Type: Spontaneous
  Country: US (occurrence: US)
  Receive Date: 20240328
  Receipt Date: 20241011
  Transmission Date: 20250115
  Serious: No
  Sender: SANOFI AVENTIS
  Company Number: US-SA-SAC20240327000391

PATIENT
  Age: 64 Year
  Sex: Female

DRUGS (1)
  1. DUPIXENT [Suspect]
     Active Substance: DUPILUMAB
     Indication: Neurodermatitis
     Dosage: 300 MG, QOW
     Route: 058
     Dates: start: 20240216

REACTIONS (11)
  - Tinnitus [Unknown]
  - Otorrhoea [Unknown]
  - Cough [Unknown]
  - Skin mass [Not Recovered/Not Resolved]
  - Contusion [Not Recovered/Not Resolved]
  - Erythema of eyelid [Unknown]
  - Eye pruritus [Unknown]
  - Dry eye [Unknown]
  - Conjunctivitis [Not Recovered/Not Resolved]
  - Rash [Not Recovered/Not Resolved]
  - Drug ineffective [Unknown]

NARRATIVE: CASE EVENT DATE: 20240101
